FAERS Safety Report 11431131 (Version 50)
Quarter: 2021Q1

REPORT INFORMATION
  Report Type: Report from Study
  Country: CA (occurrence: CA)
  Receive Date: 20150828
  Receipt Date: 20210208
  Transmission Date: 20210419
  Serious: Yes (Hospitalization, Other)
  Sender: FDA-Public Use
  Company Number: PHHY2014CA151117

PATIENT
  Age: 41 Year
  Sex: Female

DRUGS (12)
  1. NORVASC [Suspect]
     Active Substance: AMLODIPINE BESYLATE
     Dosage: 7.5 MG, UNK
     Route: 065
     Dates: start: 20190514
  2. SANDOSTATIN LAR DEPOT [Suspect]
     Active Substance: OCTREOTIDE ACETATE
     Dosage: 20 MG, QMO
     Route: 030
     Dates: start: 20170110
  3. NORVASC [Suspect]
     Active Substance: AMLODIPINE BESYLATE
     Indication: BLOOD PRESSURE MEASUREMENT
     Dosage: UNK
     Route: 065
     Dates: end: 20170724
  4. NORVASC [Suspect]
     Active Substance: AMLODIPINE BESYLATE
     Dosage: 5 MG, QD
     Route: 065
  5. NORVASC [Suspect]
     Active Substance: AMLODIPINE BESYLATE
     Dosage: 10 MG, QD
     Route: 065
  6. NORVASC [Suspect]
     Active Substance: AMLODIPINE BESYLATE
     Dosage: 5 MG, UNK
     Route: 065
  7. SANDOSTATIN LAR DEPOT [Suspect]
     Active Substance: OCTREOTIDE ACETATE
     Indication: ACROMEGALY
     Dosage: 20 MG, QMO (ONCE A MONTH)
     Route: 030
     Dates: start: 20141022, end: 20151216
  8. SANDOSTATIN LAR DEPOT [Suspect]
     Active Substance: OCTREOTIDE ACETATE
     Dosage: 20 MG, QMO
     Route: 030
     Dates: start: 20190821
  9. VITAMIN B12 [Suspect]
     Active Substance: CYANOCOBALAMIN
     Indication: PRODUCT USED FOR UNKNOWN INDICATION
     Dosage: 2500 UG, QD
     Route: 065
     Dates: start: 2017, end: 20190101
  10. MULTI VITAMIN [Concomitant]
     Active Substance: VITAMINS
     Indication: PRODUCT USED FOR UNKNOWN INDICATION
     Route: 065
  11. AMLODIPINE [Concomitant]
     Active Substance: AMLODIPINE BESYLATE
     Indication: PRODUCT USED FOR UNKNOWN INDICATION
     Dosage: 7.5 MG, QD
     Route: 048
  12. SANDOSTATIN LAR DEPOT [Suspect]
     Active Substance: OCTREOTIDE ACETATE
     Dosage: 10 MG, QMO (EVERY 4 WEEKS)
     Route: 030
     Dates: start: 20160113

REACTIONS (77)
  - Concomitant disease progression [Unknown]
  - Blindness [Unknown]
  - Hepatic lesion [Unknown]
  - Neck pain [Unknown]
  - Menstrual disorder [Unknown]
  - Trichoglossia [Unknown]
  - Jugular vein distension [Unknown]
  - Fatigue [Unknown]
  - Injection site pain [Unknown]
  - Heart rate increased [Unknown]
  - Hypothalamo-pituitary disorder [Unknown]
  - Angina pectoris [Not Recovered/Not Resolved]
  - Pain in extremity [Unknown]
  - Gingival pain [Unknown]
  - Night sweats [Unknown]
  - Swelling [Recovered/Resolved]
  - Hypoaesthesia [Unknown]
  - Disturbance in attention [Unknown]
  - Therapy non-responder [Unknown]
  - Adrenal disorder [Unknown]
  - Depression [Unknown]
  - Confusional state [Unknown]
  - Carpal tunnel syndrome [Unknown]
  - Crying [Unknown]
  - Menstruation delayed [Unknown]
  - Sleep disorder [Unknown]
  - Feeling abnormal [Unknown]
  - Soft tissue mass [Unknown]
  - Abdominal distension [Unknown]
  - Blood pressure increased [Unknown]
  - Hyperhidrosis [Unknown]
  - Benign neoplasm of adrenal gland [Unknown]
  - Brain neoplasm [Unknown]
  - Polyp [Unknown]
  - Weight increased [Unknown]
  - Ear swelling [Unknown]
  - Tinnitus [Unknown]
  - Tonsillar inflammation [Unknown]
  - Scar [Unknown]
  - Abdominal pain upper [Unknown]
  - Flatulence [Unknown]
  - Asthenia [Unknown]
  - Constipation [Recovering/Resolving]
  - Chest pain [Recovered/Resolved]
  - Tremor [Unknown]
  - Haemangioma [Unknown]
  - Dysgeusia [Unknown]
  - Blood pressure systolic increased [Unknown]
  - Hair disorder [Unknown]
  - Back injury [Unknown]
  - Intervertebral disc protrusion [Unknown]
  - Peripheral swelling [Unknown]
  - Yellow skin [Unknown]
  - Insulin-like growth factor decreased [Recovering/Resolving]
  - Adenoma benign [Unknown]
  - Abdominal pain [Recovered/Resolved]
  - Diarrhoea [Unknown]
  - Chest discomfort [Unknown]
  - Precancerous cells present [Unknown]
  - Renal disorder [Unknown]
  - Muscle fatigue [Unknown]
  - Hot flush [Unknown]
  - Hypoglycaemia [Unknown]
  - Dyspnoea [Unknown]
  - Headache [Unknown]
  - Endometriosis [Recovering/Resolving]
  - Syncope [Unknown]
  - Back pain [Unknown]
  - Muscle spasms [Unknown]
  - Paraesthesia [Unknown]
  - Nightmare [Recovering/Resolving]
  - Increased appetite [Unknown]
  - Discomfort [Unknown]
  - Neck mass [Recovered/Resolved]
  - Stress [Unknown]
  - Visual field defect [Unknown]
  - Dizziness [Unknown]

NARRATIVE: CASE EVENT DATE: 20141022
